FAERS Safety Report 19115147 (Version 1)
Quarter: 2021Q2

REPORT INFORMATION
  Report Type: Spontaneous
  Country: US (occurrence: US)
  Receive Date: 20210409
  Receipt Date: 20210409
  Transmission Date: 20210717
  Serious: Yes (Other)
  Sender: FDA-Public Use
  Company Number: US-BAYER-2021-119601

PATIENT
  Age: 72 Year
  Sex: Male
  Weight: 75.36 kg

DRUGS (5)
  1. XARELTO [Interacting]
     Active Substance: RIVAROXABAN
     Indication: PERIPHERAL ARTERIAL OCCLUSIVE DISEASE
     Dosage: 2.5 MG, QD
     Route: 048
     Dates: start: 20210225
  2. XARELTO [Interacting]
     Active Substance: RIVAROXABAN
     Indication: CORONARY ARTERY DISEASE
     Dosage: UNK
  3. XARELTO [Interacting]
     Active Substance: RIVAROXABAN
     Indication: SEIZURE
     Dosage: UNK
  4. ASPIRIN (CARDIO) [Suspect]
     Active Substance: ASPIRIN
     Indication: PRODUCT USED FOR UNKNOWN INDICATION
     Dosage: UNK
     Route: 065
  5. PHENYTOINE [Interacting]
     Active Substance: PHENYTOIN
     Indication: SEIZURE
     Dosage: UNK

REACTIONS (2)
  - Drug interaction [Unknown]
  - Therapeutic product effect decreased [Unknown]

NARRATIVE: CASE EVENT DATE: 2021
